FAERS Safety Report 22879378 (Version 5)
Quarter: 2025Q2

REPORT INFORMATION
  Report Type: Spontaneous
  Country: US (occurrence: US)
  Receive Date: 20230829
  Receipt Date: 20250401
  Transmission Date: 20250716
  Serious: No
  Sender: SANOFI AVENTIS
  Company Number: US-SA-SAC20230825000087

PATIENT
  Age: 43 Year
  Sex: Male

DRUGS (3)
  1. DUPIXENT [Suspect]
     Active Substance: DUPILUMAB
     Indication: Asthma
     Dosage: 300 MG, QOW
     Route: 058
     Dates: start: 20230714, end: 2024
  2. DUPIXENT [Suspect]
     Active Substance: DUPILUMAB
     Indication: Nasal polyps
     Dosage: 300 MG, QOW
     Route: 058
     Dates: start: 2024
  3. DUPIXENT [Suspect]
     Active Substance: DUPILUMAB
     Indication: Neurodermatitis

REACTIONS (14)
  - Dyspnoea [Unknown]
  - Pyrexia [Recovering/Resolving]
  - Gastroenteritis viral [Recovered/Resolved]
  - Blister [Unknown]
  - COVID-19 [Recovered/Resolved]
  - Oropharyngeal pain [Recovering/Resolving]
  - Hand-foot-and-mouth disease [Unknown]
  - Illness [Unknown]
  - Pruritus [Recovered/Resolved]
  - Nasopharyngitis [Unknown]
  - Rash [Recovered/Resolved]
  - Asthma [Unknown]
  - Incorrect dose administered [Unknown]
  - Inappropriate schedule of product administration [Unknown]

NARRATIVE: CASE EVENT DATE: 20230101
